FAERS Safety Report 24463568 (Version 1)
Quarter: 2024Q4

REPORT INFORMATION
  Report Type: Report from Study
  Country: US (occurrence: US)
  Receive Date: 20241018
  Receipt Date: 20241018
  Transmission Date: 20250115
  Serious: No
  Sender: ROCHE
  Company Number: US-ROCHE-3055126

PATIENT
  Age: 54 Year
  Sex: Female
  Weight: 77.11 kg

DRUGS (2)
  1. XOLAIR [Suspect]
     Active Substance: OMALIZUMAB
     Indication: Chronic spontaneous urticaria
     Route: 058
  2. XOLAIR [Suspect]
     Active Substance: OMALIZUMAB
     Indication: Urticaria
     Dosage: INJECT 2 VIALS OF 150MG (300MG TOTAL) SUBCUTANEOUSLY EVERY 2 WEEK(S)
     Route: 058

REACTIONS (3)
  - Urticaria [Recovered/Resolved]
  - Off label use [Unknown]
  - Pain [Recovered/Resolved]
